FAERS Safety Report 8883656 (Version 1)
Quarter: 2012Q4

REPORT INFORMATION
  Report Type: 
  Country: KR (occurrence: KR)
  Receive Date: 20121102
  Receipt Date: 20121102
  Transmission Date: 20130627
  Serious: Yes (Hospitalization, Other)
  Sender: FDA-Public Use
  Company Number: KR-ELI_LILLY_AND_COMPANY-KR201210009615

PATIENT
  Sex: Male

DRUGS (4)
  1. HUMALOG LISPRO [Suspect]
     Indication: DIABETES MELLITUS
     Dosage: 8 IU, tid
     Route: 058
     Dates: start: 20120816
  2. HUMALOG LISPRO [Suspect]
     Dosage: 10 IU, tid
     Route: 058
  3. LANTUS [Concomitant]
     Indication: DIABETES MELLITUS
     Dosage: UNK
     Dates: start: 20120816
  4. DRUGS USED IN BENIGN PROSTATIC HYPERTROPHY [Concomitant]
     Indication: BENIGN PROSTATIC HYPERPLASIA
     Dosage: 10 IU, UNK

REACTIONS (3)
  - Pancreatic carcinoma metastatic [Recovering/Resolving]
  - Blood glucose increased [Not Recovered/Not Resolved]
  - Blood glucose decreased [Unknown]
